FAERS Safety Report 4616954-4 (Version None)
Quarter: 2005Q1

REPORT INFORMATION
  Report Type: 
  Country: None (occurrence: None)
  Receive Date: 20050321
  Receipt Date: 20041110
  Transmission Date: 20050727
  Serious: Yes (Hospitalization)
  Sender: FDA-Public Use
  Company Number: 2004AP05736

PATIENT
  Age: 62 Year
  Sex: Female

DRUGS (3)
  1. NEXIUM [Suspect]
     Indication: GASTRIC DISORDER
     Dosage: 40 MG DAILY PO
     Route: 048
     Dates: start: 20040401, end: 20040413
  2. KARVEA [Concomitant]
  3. LIPITOR [Concomitant]

REACTIONS (8)
  - ANOREXIA [None]
  - AZOTAEMIA [None]
  - HAEMODIALYSIS [None]
  - LETHARGY [None]
  - NAUSEA [None]
  - NEPHRITIS INTERSTITIAL [None]
  - RENAL FAILURE ACUTE [None]
  - VOMITING [None]
